FAERS Safety Report 6242436-2 (Version None)
Quarter: 2009Q2

REPORT INFORMATION
  Report Type: 
  Country: None (occurrence: None)
  Receive Date: 20090622
  Receipt Date: 20090622
  Transmission Date: 20091009
  Serious: Yes (Hospitalization)
  Sender: FDA-Public Use
  Company Number: None

PATIENT
  Age: 45 Year
  Sex: Male
  Weight: 90.7194 kg

DRUGS (1)
  1. MEDROL [Suspect]
     Dosage: MEDROL PAC
     Dates: start: 20090525, end: 20090528

REACTIONS (2)
  - HYDROCEPHALUS [None]
  - MALAISE [None]
